FAERS Safety Report 22083004 (Version 1)
Quarter: 2023Q1

REPORT INFORMATION
  Report Type: Report from Study
  Country: JP (occurrence: JP)
  Receive Date: 20230310
  Receipt Date: 20230310
  Transmission Date: 20230417
  Serious: Yes (Other)
  Sender: FDA-Public Use
  Company Number: JP-Accord-303545

PATIENT

DRUGS (3)
  1. FLUOROURACIL [Suspect]
     Active Substance: FLUOROURACIL
     Indication: Ductal adenocarcinoma of pancreas
     Dosage: 2400 MG/M2 5-FU VIA INTRAVENOUS INFUSION OVER 46 H EVERY 2 WEEKS
  2. IRINOTECAN [Suspect]
     Active Substance: IRINOTECAN
     Indication: Ductal adenocarcinoma of pancreas
     Dosage: INTRAVENOUS INFUSION OVER 90 MIN
  3. LEUCOVORIN [Suspect]
     Active Substance: LEUCOVORIN
     Indication: Ductal adenocarcinoma of pancreas
     Dosage: 200 MG/M2 L-LV VIA INTRAVENOUS INFUSION OVER 2 H

REACTIONS (1)
  - Interstitial lung disease [Unknown]
